FAERS Safety Report 10461324 (Version 1)
Quarter: 2014Q3

REPORT INFORMATION
  Report Type: Spontaneous
  Country: GB (occurrence: None)
  Receive Date: 20140916
  Receipt Date: 20140916
  Transmission Date: 20150326
  Serious: Yes (Hospitalization)
  Sender: FDA-Public Use
  Company Number: GB-H14001-14-00569

PATIENT
  Age: 53 Year
  Sex: Female

DRUGS (1)
  1. CO-AMOXICLAV [Suspect]
     Active Substance: AMOXICILLIN\CLAVULANIC ACID
     Indication: SPINAL PAIN
     Dosage: 3750 (1250 MG, 3 IN 1 D), ORAL
     Route: 048
     Dates: start: 20140609, end: 20140827

REACTIONS (3)
  - Hepatic enzyme increased [None]
  - Chest pain [None]
  - Hepatotoxicity [None]

NARRATIVE: CASE EVENT DATE: 2014
